FAERS Safety Report 4365870-4 (Version None)
Quarter: 2004Q2

REPORT INFORMATION
  Report Type: 
  Country: None (occurrence: None)
  Receive Date: 20040524
  Receipt Date: 20040323
  Transmission Date: 20050107
  Serious: No
  Sender: FDA-Public Use
  Company Number: SU-2004-002243

PATIENT
  Age: 60 Year
  Sex: Male
  Weight: 97.0698 kg

DRUGS (4)
  1. BENICAR [Suspect]
     Indication: HYPERTENSION
     Dosage: 20 MG QD PO
     Route: 048
     Dates: start: 20040323
  2. XANAX [Concomitant]
  3. PREVACID [Concomitant]
  4. LEVSIN PB [Concomitant]

REACTIONS (3)
  - DIZZINESS [None]
  - FEELING ABNORMAL [None]
  - LOOSE STOOLS [None]
